FAERS Safety Report 15726397 (Version 2)
Quarter: 2019Q1

REPORT INFORMATION
  Report Type: Spontaneous
  Country: FR (occurrence: FR)
  Receive Date: 20181217
  Receipt Date: 20190318
  Transmission Date: 20190417
  Serious: Yes (Hospitalization)
  Sender: FDA-Public Use
  Company Number: FR-ROCHE-2229031

PATIENT
  Age: 45 Year
  Sex: Female

DRUGS (11)
  1. MELPHALAN. [Suspect]
     Active Substance: MELPHALAN
     Indication: NON-HODGKIN^S LYMPHOMA STAGE IV
     Dosage: DAY -2
     Route: 065
  2. ARACYTINE [Suspect]
     Active Substance: CYTARABINE
     Indication: BONE MARROW CONDITIONING REGIMEN
     Dosage: 1 G/M2 DAY 6 AND DAY 3
     Route: 065
  3. ARACYTINE [Suspect]
     Active Substance: CYTARABINE
     Indication: NON-HODGKIN^S LYMPHOMA STAGE IV
  4. MELPHALAN. [Suspect]
     Active Substance: MELPHALAN
     Indication: BONE MARROW CONDITIONING REGIMEN
  5. BENDAMUSTINE HYDROCHLORIDE. [Suspect]
     Active Substance: BENDAMUSTINE HYDROCHLORIDE
     Indication: WALDENSTROM^S MACROGLOBULINAEMIA STAGE IV
  6. MOZOBIL [Concomitant]
     Active Substance: PLERIXAFOR
     Indication: PREMEDICATION
     Route: 065
  7. RITUXIMAB. [Suspect]
     Active Substance: RITUXIMAB
     Indication: NON-HODGKIN^S LYMPHOMA STAGE IV
     Route: 065
  8. BENDAMUSTINE HYDROCHLORIDE. [Suspect]
     Active Substance: BENDAMUSTINE HYDROCHLORIDE
     Indication: BONE MARROW CONDITIONING REGIMEN
  9. BENDAMUSTINE HYDROCHLORIDE. [Suspect]
     Active Substance: BENDAMUSTINE HYDROCHLORIDE
     Indication: LYMPHOMA
     Dosage: DAY -7 AND DAY -6
     Route: 065
  10. BENDAMUSTINE HYDROCHLORIDE. [Suspect]
     Active Substance: BENDAMUSTINE HYDROCHLORIDE
     Indication: NON-HODGKIN^S LYMPHOMA STAGE III
     Dosage: 200 MG/M2,UNK, D-7 AND D-6
     Route: 065
  11. ETOPOSIDE. [Suspect]
     Active Substance: ETOPOSIDE
     Indication: NON-HODGKIN^S LYMPHOMA STAGE IV
     Dosage: DAY -6 TO DAY -3
     Route: 065

REACTIONS (12)
  - Ascites [Recovered/Resolved]
  - Pericardial effusion [Recovered/Resolved]
  - Haemorrhage [Unknown]
  - Acute kidney injury [Recovered/Resolved]
  - Renal tubular disorder [Unknown]
  - Schistocytosis [Recovered/Resolved]
  - Generalised oedema [Recovered/Resolved]
  - Toxicity to various agents [Recovered/Resolved]
  - Ill-defined disorder [Recovered/Resolved]
  - Renal failure [Not Recovered/Not Resolved]
  - Venoocclusive liver disease [Recovered/Resolved]
  - Thrombotic microangiopathy [Recovered/Resolved]
